FAERS Safety Report 23276621 (Version 7)
Quarter: 2024Q3

REPORT INFORMATION
  Report Type: Report from Study
  Country: BR (occurrence: BR)
  Receive Date: 20231208
  Receipt Date: 20240813
  Transmission Date: 20241016
  Serious: Yes (Other)
  Sender: TAKEDA
  Company Number: BR-TAKEDA-2023TUS104905

PATIENT
  Sex: Male
  Weight: 85 kg

DRUGS (6)
  1. VEDOLIZUMAB [Suspect]
     Active Substance: VEDOLIZUMAB
     Indication: Crohn^s disease
     Dosage: 300 MILLIGRAM
     Route: 042
     Dates: start: 20231011
  2. ADALIMUMAB [Suspect]
     Active Substance: ADALIMUMAB
     Indication: Product used for unknown indication
     Dosage: UNK
     Route: 058
  3. ENALAPRIL [Concomitant]
     Active Substance: ENALAPRIL
     Dosage: UNK
  4. ATORVASTATIN [Concomitant]
     Active Substance: ATORVASTATIN
     Dosage: UNK
  5. FLUOXETINE [Concomitant]
     Active Substance: FLUOXETINE HYDROCHLORIDE
     Dosage: UNK
  6. INFLIXIMAB [Concomitant]
     Active Substance: INFLIXIMAB
     Dosage: UNK

REACTIONS (22)
  - Crohn^s disease [Unknown]
  - Deafness neurosensory [Unknown]
  - Polycythaemia vera [Unknown]
  - Syncope [Recovered/Resolved]
  - Asthenia [Unknown]
  - Social problem [Unknown]
  - Emotional distress [Unknown]
  - Dyslipidaemia [Unknown]
  - Loss of therapeutic response [Unknown]
  - Drug specific antibody present [Unknown]
  - Gastrointestinal pain [Unknown]
  - Inappropriate schedule of product administration [Unknown]
  - Dysgeusia [Unknown]
  - Diarrhoea [Unknown]
  - Pain [Unknown]
  - Dizziness [Unknown]
  - Decreased appetite [Unknown]
  - Abdominal distension [Unknown]
  - Arthralgia [Unknown]
  - Nausea [Unknown]
  - Pruritus [Unknown]
  - Malaise [Unknown]
